FAERS Safety Report 17724946 (Version 5)
Quarter: 2020Q3

REPORT INFORMATION
  Report Type: Report from Study
  Country: AU (occurrence: AU)
  Receive Date: 20200429
  Receipt Date: 20200625
  Transmission Date: 20201105
  Serious: Yes (Other)
  Sender: FDA-Public Use
  Company Number: AU-SHIONOGI, INC-2020000259

PATIENT
  Age: 80 Year
  Sex: Female
  Weight: 78 kg

DRUGS (23)
  1. CEFIDEROCOL. [Suspect]
     Active Substance: CEFIDEROCOL
     Dosage: 1.5 G, 1 PER 8 HOUR
     Route: 041
     Dates: start: 20200414, end: 20200419
  2. CALCIUM CARBONATE. [Concomitant]
     Active Substance: CALCIUM CARBONATE
     Indication: OSTEOPOROSIS
     Dosage: 600MG 2 TABS 6 TIMES PER WEEK (EXCEPT ON FRI)
     Route: 048
     Dates: start: 2014
  3. IRBESARTAN. [Concomitant]
     Active Substance: IRBESARTAN
     Indication: HYPERTENSION
     Dosage: 300 MG ? 25 MG MORNING
     Route: 048
     Dates: start: 2014, end: 20200313
  4. MOXONIDINE [Concomitant]
     Active Substance: MOXONIDINE
     Indication: HYPERTENSION
     Dosage: MORNING
     Route: 048
     Dates: start: 2014
  5. PARACETAMOL [Concomitant]
     Active Substance: ACETAMINOPHEN
     Indication: BACK PAIN
     Dosage: 1000 MG, PRN6
     Route: 048
     Dates: start: 2014
  6. PRAZOSIN. [Concomitant]
     Active Substance: PRAZOSIN
     Indication: HYPERTENSION
     Dosage: 2 MG, TID
     Route: 065
     Dates: start: 20200429
  7. ENOXAPARIN [Concomitant]
     Active Substance: ENOXAPARIN
     Indication: THROMBOSIS PROPHYLAXIS
     Dosage: NIGHT
     Route: 058
     Dates: start: 20200210, end: 20200418
  8. RISEDRONATE SODIUM. [Concomitant]
     Active Substance: RISEDRONATE SODIUM
     Indication: OSTEOPOROSIS
     Dosage: ON FRI
     Route: 048
     Dates: start: 2014
  9. CEFIDEROCOL. [Suspect]
     Active Substance: CEFIDEROCOL
     Dosage: 2 G, 1 PER 8 HOUR
     Route: 041
     Dates: start: 20200331, end: 20200413
  10. LERCANIDIPINE [Concomitant]
     Active Substance: LERCANIDIPINE
     Indication: HYPERTENSION
     Dosage: NIGHT
     Route: 048
     Dates: start: 2014, end: 20200416
  11. POTASSIUM CHLORIDE. [Concomitant]
     Active Substance: POTASSIUM CHLORIDE
     Indication: HYPOKALAEMIA
     Dosage: 600 MG, 1 PER 12 HOUR
     Route: 065
     Dates: start: 20200323
  12. PREGABALIN. [Concomitant]
     Active Substance: PREGABALIN
     Dosage: MORNING, NIGHT
     Route: 048
     Dates: start: 20200222
  13. CEFIDEROCOL. [Suspect]
     Active Substance: CEFIDEROCOL
     Indication: ACINETOBACTER INFECTION
     Dosage: 1.5 G, 1 PER 8 HOUR
     Route: 041
     Dates: start: 20200319, end: 20200330
  14. COLECALCIFEROL [Concomitant]
     Active Substance: CHOLECALCIFEROL
     Indication: VITAMIN D DEFICIENCY
     Dosage: MIDDAY
     Route: 048
     Dates: start: 2014
  15. TAZOBACTAM SODIUM AND PIPERACILLIN SODIUM [Concomitant]
     Active Substance: PIPERACILLIN SODIUM\TAZOBACTAM SODIUM
     Dates: start: 20200226
  16. BUDESONIDE FORMOTEROL [Concomitant]
     Active Substance: BUDESONIDE
     Indication: ASTHMA
     Dosage: 400MCG?12MCG
     Route: 065
     Dates: start: 2014
  17. PREGABALIN. [Concomitant]
     Active Substance: PREGABALIN
     Indication: BACK PAIN
     Dosage: 75 MG, QD
     Route: 048
     Dates: start: 2018, end: 20200222
  18. LERCANIDIPINE [Concomitant]
     Active Substance: LERCANIDIPINE
     Dosage: 20 MG, QD
     Route: 048
     Dates: start: 20200416
  19. MAGNESIUM ASPARTATE [Concomitant]
     Active Substance: MAGNESIUM ASPARTATE
     Indication: CONSTIPATION
     Dosage: WITH FOOD
     Route: 048
     Dates: start: 2014
  20. FRUSEMIDE ALMUS [Concomitant]
     Indication: HYPERTENSION
     Dosage: 40 MG, QD
     Route: 065
     Dates: start: 20200421
  21. DOCUSATE?SENNA [Concomitant]
     Indication: FAECES SOFT
     Dosage: 50MG?8MG
     Route: 048
     Dates: start: 2014
  22. ESOMEPRAZOLE. [Concomitant]
     Active Substance: ESOMEPRAZOLE MAGNESIUM
     Indication: GASTROOESOPHAGEAL REFLUX DISEASE
     Dosage: 20 MG, 1 PER 12 HOUR
     Route: 048
     Dates: start: 20200312, end: 20200422
  23. MACROGOL [Concomitant]
     Active Substance: POLYETHYLENE GLYCOLS
     Route: 048

REACTIONS (1)
  - Acute kidney injury [Recovered/Resolved]

NARRATIVE: CASE EVENT DATE: 20200409
